FAERS Safety Report 4712643-6 (Version None)
Quarter: 2005Q3

REPORT INFORMATION
  Report Type: 
  Country: None (occurrence: None)
  Receive Date: 20050712
  Receipt Date: 20050623
  Transmission Date: 20060218
  Serious: Yes (Other)
  Sender: FDA-Public Use
  Company Number: US-MERCK-0506USA03408

PATIENT
  Age: 71 Year
  Sex: Male
  Weight: 84 kg

DRUGS (12)
  1. VIOXX [Suspect]
     Indication: SCIATICA
     Route: 048
     Dates: start: 20020301, end: 20020601
  2. ASPIRIN [Concomitant]
     Route: 065
  3. SOTALOL HYDROCHLORIDE [Concomitant]
     Route: 065
  4. LISINOPRIL [Concomitant]
     Route: 065
  5. GEMFIBROZIL [Concomitant]
     Route: 065
  6. IMDUR [Concomitant]
     Route: 065
  7. VITAMINS (UNSPECIFIED) [Concomitant]
     Route: 065
  8. ACCUPRIL [Concomitant]
     Route: 065
  9. COLACE [Concomitant]
     Route: 065
  10. TYLENOL [Concomitant]
     Route: 065
  11. ZESTRIL [Concomitant]
     Route: 065
  12. PLAVIX [Concomitant]
     Route: 065

REACTIONS (1)
  - CEREBROVASCULAR ACCIDENT [None]
